FAERS Safety Report 8427855-8 (Version None)
Quarter: 2012Q2

REPORT INFORMATION
  Report Type: 
  Country: None (occurrence: None)
  Receive Date: 20120611
  Receipt Date: 20120607
  Transmission Date: 20120825
  Serious: Yes (Life-Threatening, Hospitalization, Other)
  Sender: FDA-Public Use
  Company Number: AU-ASTRAZENECA-2012SE38142

PATIENT
  Age: 0 Day
  Sex: Female

DRUGS (2)
  1. XANAX [Suspect]
     Indication: ANXIETY
     Dosage: 4-5 MG DAILY STARTED PRE-PREGNANCY AND STOPPED AT 5/40 WEEKS
     Route: 064
  2. SEROQUEL XR [Suspect]
     Indication: PSYCHOTIC DISORDER
     Dosage: STARTED PRE-PREGNANCY
     Route: 064

REACTIONS (3)
  - BLOOD GLUCOSE DECREASED [None]
  - DRUG WITHDRAWAL SYNDROME NEONATAL [None]
  - BODY TEMPERATURE DECREASED [None]
